FAERS Safety Report 14363621 (Version 1)
Quarter: 2018Q1

REPORT INFORMATION
  Report Type: Spontaneous
  Country: CN (occurrence: CN)
  Receive Date: 20180108
  Receipt Date: 20180108
  Transmission Date: 20180509
  Serious: Yes (Hospitalization)
  Sender: FDA-Public Use
  Company Number: CN-PFIZER INC-2018002553

PATIENT
  Age: 70 Year
  Sex: Female
  Weight: 48 kg

DRUGS (1)
  1. GLUCOTROL XL [Suspect]
     Active Substance: GLIPIZIDE
     Indication: BLOOD GLUCOSE ABNORMAL
     Dosage: 1 TABLET, 2X/DAY
     Route: 048
     Dates: start: 20171108, end: 20171118

REACTIONS (1)
  - Hypoglycaemic coma [Recovering/Resolving]

NARRATIVE: CASE EVENT DATE: 20171118
